FAERS Safety Report 24717428 (Version 1)
Quarter: 2024Q4

REPORT INFORMATION
  Report Type: Spontaneous
  Country: US (occurrence: US)
  Receive Date: 20241210
  Receipt Date: 20241210
  Transmission Date: 20250114
  Serious: Yes (Hospitalization)
  Sender: CATALYST PHARMA
  Company Number: US-CATALYSTPHARMACEUTICALPARTNERS-US-CATA-24-01433

PATIENT
  Age: 70 Year
  Sex: Male

DRUGS (2)
  1. FYCOMPA [Suspect]
     Active Substance: PERAMPANEL
     Indication: Product used for unknown indication
     Dosage: 1 TABLET (2 MG) A DAY
     Route: 048
     Dates: end: 20241125
  2. FYCOMPA [Suspect]
     Active Substance: PERAMPANEL
     Dosage: 2 TABLETS (4 MG) A DAY
     Route: 048
     Dates: start: 20241125

REACTIONS (1)
  - Hospitalisation [Recovered/Resolved]

NARRATIVE: CASE EVENT DATE: 20241125
